FAERS Safety Report 7669773-9 (Version None)
Quarter: 2011Q3

REPORT INFORMATION
  Report Type: 
  Country: None (occurrence: None)
  Receive Date: 20110808
  Receipt Date: 20110804
  Transmission Date: 20111222
  Serious: Yes (Other)
  Sender: FDA-Public Use
  Company Number: US-JNJFOC-20110410512

PATIENT
  Sex: Male
  Weight: 104.33 kg

DRUGS (9)
  1. DITROPAN XL [Suspect]
     Route: 048
     Dates: end: 20110401
  2. FLOMAX [Concomitant]
     Indication: URINE ABNORMALITY
     Route: 048
     Dates: start: 20050101, end: 20110101
  3. NORVASC [Interacting]
     Indication: HYPERTENSION
     Route: 048
     Dates: start: 20110101
  4. DITROPAN XL [Suspect]
     Route: 048
     Dates: start: 20110401
  5. ATENOLOL [Interacting]
     Indication: HYPERTENSION
     Route: 048
     Dates: start: 20080101, end: 20110101
  6. DITROPAN XL [Suspect]
     Indication: INCONTINENCE
     Dosage: AFTER 3 OR 4 YEARS
     Route: 048
  7. DITROPAN XL [Suspect]
     Route: 048
     Dates: start: 20050101
  8. ATACAND [Interacting]
     Indication: HYPERTENSION
     Route: 065
     Dates: start: 20080101, end: 20110101
  9. UROXATRAL [Interacting]
     Indication: URINE ABNORMALITY
     Route: 048
     Dates: start: 20110101

REACTIONS (6)
  - DRUG INTERACTION [None]
  - DRY THROAT [None]
  - DRUG INEFFECTIVE [None]
  - DRY MOUTH [None]
  - HYPERTENSION [None]
  - LUNG DISORDER [None]
